FAERS Safety Report 10518796 (Version 1)
Quarter: 2014Q4

REPORT INFORMATION
  Report Type: Spontaneous
  Country: CH (occurrence: CH)
  Receive Date: 20141015
  Receipt Date: 20141015
  Transmission Date: 20150528
  Serious: Yes (Hospitalization)
  Sender: FDA-Public Use
  Company Number: PHHY2014CH132564

PATIENT
  Age: 85 Year
  Sex: Male
  Weight: 65 kg

DRUGS (21)
  1. PERFALGAN [Concomitant]
     Active Substance: ACETAMINOPHEN
     Indication: PYREXIA
     Dosage: 1000 MG, QID (IN RESERVE IN CASE OF FEVER)
     Route: 048
     Dates: start: 20140815, end: 20140827
  2. CETRIZINE [Concomitant]
     Active Substance: CETIRIZINE HYDROCHLORIDE
     Dosage: 10 MG, BID
     Route: 048
     Dates: start: 20140829, end: 20140901
  3. FLAGYL [Suspect]
     Active Substance: METRONIDAZOLE\METRONIDAZOLE HYDROCHLORIDE
     Indication: DIARRHOEA
     Dosage: 500 MG, TID
     Route: 048
     Dates: start: 20140820
  4. PRAVASTATIN [Concomitant]
     Active Substance: PRAVASTATIN\PRAVASTATIN SODIUM
     Indication: HYPERCHOLESTEROLAEMIA
     Dosage: 40 MG, QD
     Route: 048
     Dates: start: 2012, end: 20140812
  5. SPASMO URGENIN [Concomitant]
     Indication: POLLAKIURIA
     Dosage: 20 MG, BID
     Route: 048
     Dates: start: 20140820, end: 20140820
  6. ACETYLSALICYLIC ACID [Suspect]
     Active Substance: ASPIRIN
     Indication: ISCHAEMIC CARDIOMYOPATHY
     Dosage: 100 MG, QD
     Route: 048
     Dates: start: 199508
  7. QUETIAPINE [Concomitant]
     Active Substance: QUETIAPINE
     Indication: AGITATION
     Dosage: 6.25 MG, BID
     Route: 048
     Dates: start: 20140805
  8. SINTROM [Concomitant]
     Active Substance: ACENOCOUMAROL
     Indication: ATRIAL FIBRILLATION
     Dosage: UNK UKN, UNK
     Route: 048
     Dates: start: 20140830
  9. LIORESAL [Suspect]
     Active Substance: BACLOFEN
     Indication: DYSKINESIA
     Dates: start: 2012
  10. LIORESAL [Suspect]
     Active Substance: BACLOFEN
     Dosage: 2.5 MG, BID
     Route: 048
     Dates: start: 20140821, end: 20140827
  11. TAZOBAC [Concomitant]
     Active Substance: PIPERACILLIN SODIUM\TAZOBACTAM SODIUM
     Indication: PLEURAL INFECTION BACTERIAL
     Dosage: 4.5 G, TID
     Route: 048
     Dates: start: 20140812, end: 20140819
  12. LIORESAL [Suspect]
     Active Substance: BACLOFEN
     Dosage: 5 MG, BID
     Route: 048
     Dates: start: 20140828, end: 20140829
  13. CEFTRIAXONE. [Suspect]
     Active Substance: CEFTRIAXONE
     Indication: BRONCHOPNEUMONIA
     Dosage: 2 G, QD
     Route: 040
     Dates: start: 20140820
  14. CLEXANE [Concomitant]
     Active Substance: ENOXAPARIN SODIUM
     Indication: ATRIAL FIBRILLATION
     Dosage: 60 MG, BID
     Route: 058
     Dates: start: 20140829, end: 20140903
  15. CLOPIDOGREL [Suspect]
     Active Substance: CLOPIDOGREL BISULFATE
     Dosage: 75 MG, QD
     Route: 048
     Dates: end: 20140829
  16. ATORVASTATIN [Suspect]
     Active Substance: ATORVASTATIN
     Indication: HYPERCHOLESTEROLAEMIA
     Dosage: 80 MG, QD
     Route: 048
     Dates: start: 20140813, end: 20140829
  17. NEXIUM [Concomitant]
     Active Substance: ESOMEPRAZOLE MAGNESIUM
     Indication: HIATUS HERNIA
     Dosage: 40 MG, QD
     Route: 048
     Dates: start: 201211
  18. CLOPIDOGREL [Suspect]
     Active Substance: CLOPIDOGREL BISULFATE
     Indication: CEREBROVASCULAR ACCIDENT
     Dosage: 225 MG, ONCE/SINGLE
     Route: 048
     Dates: start: 20140812
  19. VITAMIN B12 [Concomitant]
     Active Substance: CYANOCOBALAMIN
     Indication: VITAMIN B12 DEFICIENCY
     Dosage: 1 MG, QD
     Route: 048
     Dates: start: 20140805
  20. CETRIZINE [Concomitant]
     Active Substance: CETIRIZINE HYDROCHLORIDE
     Indication: ANGIOEDEMA
     Dosage: 5 MG (SINGLE DOSE)
     Dates: start: 20140828
  21. DISTRANEURIN [Concomitant]
     Active Substance: CLOMETHIAZOLE
     Indication: INSOMNIA
     Dosage: 150 MG, QD
     Route: 048
     Dates: start: 20140822

REACTIONS (1)
  - Angioedema [Recovered/Resolved]

NARRATIVE: CASE EVENT DATE: 20140828
